FAERS Safety Report 7909162-2 (Version None)
Quarter: 2011Q4

REPORT INFORMATION
  Report Type: 
  Country: None (occurrence: None)
  Receive Date: 20111111
  Receipt Date: 20110320
  Transmission Date: 20120403
  Serious: No
  Sender: FDA-Public Use
  Company Number: US-GLAXOSMITHKLINE-A0919668A

PATIENT
  Sex: Male

DRUGS (1)
  1. COREG [Suspect]
     Indication: PRODUCT USED FOR UNKNOWN INDICATION
     Dates: start: 20080101

REACTIONS (7)
  - LIBIDO DECREASED [None]
  - ADVERSE EVENT [None]
  - HAIR TEXTURE ABNORMAL [None]
  - FATIGUE [None]
  - THROAT TIGHTNESS [None]
  - HYPOTENSION [None]
  - ALOPECIA [None]
